FAERS Safety Report 7267072-0 (Version None)
Quarter: 2011Q1

REPORT INFORMATION
  Report Type: 
  Country: None (occurrence: None)
  Receive Date: 20110201
  Receipt Date: 20110120
  Transmission Date: 20110831
  Serious: Yes (Other)
  Sender: FDA-Public Use
  Company Number: PHHO2011ES01592

PATIENT
  Sex: Male

DRUGS (1)
  1. OXCARBAZEPINE [Suspect]
     Dosage: UNK
     Dates: start: 20040204

REACTIONS (2)
  - ALANINE AMINOTRANSFERASE INCREASED [None]
  - HEPATIC STEATOSIS [None]
